FAERS Safety Report 6226605-3 (Version None)
Quarter: 2009Q2

REPORT INFORMATION
  Report Type: 
  Country: None (occurrence: None)
  Receive Date: 20090612
  Receipt Date: 20090605
  Transmission Date: 20091009
  Serious: Yes (Other)
  Sender: FDA-Public Use
  Company Number: JP-JNJFOC-20090602804

PATIENT
  Age: 80 Year
  Sex: Male

DRUGS (3)
  1. RISPERDAL [Suspect]
     Dosage: ONE TABLET
     Route: 048
  2. RISPERDAL [Suspect]
     Indication: DRUG USE FOR UNKNOWN INDICATION
     Dosage: HALF TABLET
     Route: 048
  3. MAGNESIUM OXIDE [Concomitant]

REACTIONS (2)
  - CHOKING [None]
  - SALIVARY HYPERSECRETION [None]
